FAERS Safety Report 6752318-5 (Version None)
Quarter: 2010Q2

REPORT INFORMATION
  Report Type: 
  Country: None (occurrence: None)
  Receive Date: 20100602
  Receipt Date: 20100527
  Transmission Date: 20101027
  Serious: Yes (Death)
  Sender: FDA-Public Use
  Company Number: GXKR2007GB03811

PATIENT
  Age: 68 Year
  Sex: Female
  Weight: 64 kg

DRUGS (6)
  1. MIRTAZAPINE [Suspect]
     Indication: DEPRESSION
     Dosage: 30 MG, UNK
     Route: 048
     Dates: start: 20051207
  2. CYMBALTA [Suspect]
     Indication: DEPRESSION
     Dosage: 30 MG TO 60 MG
     Route: 065
     Dates: start: 20070118
  3. TEMAZEPAM [Concomitant]
     Indication: DEPRESSION
     Dosage: 20 MG, UNK
     Route: 048
  4. VENLAFAXINE HYDROCHLORIDE [Concomitant]
     Indication: DEPRESSION
     Dosage: UNK
     Route: 065
     Dates: start: 20060101, end: 20070117
  5. MIRTAZAPINE [Concomitant]
     Indication: DEPRESSION
     Dosage: UNK
  6. MIRTAZAPINE [Concomitant]
     Dosage: UNK
     Dates: start: 20060101

REACTIONS (4)
  - BRAIN OEDEMA [None]
  - CIRCULATORY COLLAPSE [None]
  - HEADACHE [None]
  - SUBARACHNOID HAEMORRHAGE [None]
